FAERS Safety Report 16702250 (Version 1)
Quarter: 2019Q3

REPORT INFORMATION
  Report Type: Spontaneous
  Country: US (occurrence: US)
  Receive Date: 20190814
  Receipt Date: 20190814
  Transmission Date: 20191004
  Serious: No
  Sender: FDA-Public Use
  Company Number: US-PFIZER INC-2019345592

PATIENT
  Age: 80 Year
  Sex: Female

DRUGS (1)
  1. GABAPENTIN. [Suspect]
     Active Substance: GABAPENTIN
     Dosage: UNK

REACTIONS (6)
  - Tenderness [Unknown]
  - Dizziness [Unknown]
  - Drug ineffective [Unknown]
  - Pain [Unknown]
  - Contraindicated product administered [Unknown]
  - Drug hypersensitivity [Unknown]
